FAERS Safety Report 4470575-5 (Version None)
Quarter: 2004Q4

REPORT INFORMATION
  Report Type: 
  Country: None (occurrence: None)
  Receive Date: 20041006
  Receipt Date: 20041006
  Transmission Date: 20050328
  Serious: Yes (Hospitalization)
  Sender: FDA-Public Use
  Company Number: None

PATIENT
  Sex: Male
  Weight: 77.5651 kg

DRUGS (10)
  1. GEFITINIB [Suspect]
     Indication: BRAIN NEOPLASM
     Dosage: 250MG  PO DAILY A CYCLE
     Route: 048
  2. RAD001 [Suspect]
     Indication: BRAIN NEOPLASM
     Dosage: 50 MG  PO 1XWEEK A CYCLE
     Route: 048
  3. ATENOLOL [Concomitant]
  4. DEPAKOTE [Concomitant]
  5. NEXIUM [Concomitant]
  6. PAXIL [Concomitant]
  7. LIPITOR [Concomitant]
  8. LOTREL [Concomitant]
  9. KEPPRA [Concomitant]
  10. DEPAKOTE [Concomitant]

REACTIONS (6)
  - ABASIA [None]
  - ASTHENIA [None]
  - DYSPNOEA EXERTIONAL [None]
  - FALL [None]
  - GAIT DISTURBANCE [None]
  - OEDEMA [None]
